FAERS Safety Report 10392024 (Version 2)
Quarter: 2014Q4

REPORT INFORMATION
  Report Type: Spontaneous
  Country: JP (occurrence: JP)
  Receive Date: 20140819
  Receipt Date: 20141106
  Transmission Date: 20150528
  Serious: No
  Sender: FDA-Public Use
  Company Number: PHHY2011JP122279

PATIENT
  Age: 25 Year
  Sex: Female

DRUGS (2)
  1. GLIVEC [Suspect]
     Active Substance: IMATINIB MESYLATE
     Indication: CHRONIC MYELOID LEUKAEMIA
     Route: 065
     Dates: start: 2000
  2. GLIVEC [Suspect]
     Active Substance: IMATINIB MESYLATE
     Dosage: UNK UKN, UNK

REACTIONS (1)
  - Maternal exposure during pregnancy [Unknown]
